FAERS Safety Report 19657913 (Version 1)
Quarter: 2021Q3

REPORT INFORMATION
  Report Type: Other
  Country: US (occurrence: US)
  Receive Date: 20210804
  Receipt Date: 20210804
  Transmission Date: 20211014
  Serious: Yes (Hospitalization, Other)
  Sender: FDA-Public Use
  Company Number: US-ROCHE-2868799

PATIENT
  Age: 61 Year
  Sex: Female

DRUGS (12)
  1. LASIX [Concomitant]
     Active Substance: FUROSEMIDE
  2. PRILOSEC [Concomitant]
     Active Substance: OMEPRAZOLE MAGNESIUM
  3. DULOXETINE. [Concomitant]
     Active Substance: DULOXETINE
  4. AMLODIPINE [Concomitant]
     Active Substance: AMLODIPINE BESYLATE
  5. MIRANAX [Concomitant]
  6. BACLOFEN. [Concomitant]
     Active Substance: BACLOFEN
  7. METOPROLOL. [Concomitant]
     Active Substance: METOPROLOL
  8. MYRBETRIC [Concomitant]
     Active Substance: MIRABEGRON
  9. OCREVUS [Suspect]
     Active Substance: OCRELIZUMAB
     Indication: SECONDARY PROGRESSIVE MULTIPLE SCLEROSIS
     Dosage: DAY 1
     Route: 042
     Dates: start: 20180620
  10. TROSPIUM [Concomitant]
     Active Substance: TROSPIUM
  11. OCREVUS [Suspect]
     Active Substance: OCRELIZUMAB
     Dosage: DAY 15
     Route: 042
     Dates: start: 20180711
  12. OCREVUS [Suspect]
     Active Substance: OCRELIZUMAB
     Route: 042
     Dates: start: 20191219

REACTIONS (7)
  - Urinary tract infection [Unknown]
  - VIIth nerve injury [Unknown]
  - Cellulitis [Unknown]
  - Lymphoedema [Unknown]
  - Fall [Unknown]
  - Sepsis [Unknown]
  - Head injury [Recovering/Resolving]

NARRATIVE: CASE EVENT DATE: 202105
